FAERS Safety Report 20357517 (Version 2)
Quarter: 2022Q1

REPORT INFORMATION
  Report Type: Spontaneous
  Country: IT (occurrence: IT)
  Receive Date: 20220120
  Receipt Date: 20220203
  Transmission Date: 20220424
  Serious: Yes (Death, Hospitalization)
  Sender: FDA-Public Use
  Company Number: IT-TEVA-2022-IT-1998991

PATIENT
  Age: 52 Year
  Sex: Female

DRUGS (17)
  1. CASPOFUNGIN [Suspect]
     Active Substance: CASPOFUNGIN
     Indication: Antifungal treatment
     Route: 065
     Dates: start: 2020
  2. ETOPOSIDE [Suspect]
     Active Substance: ETOPOSIDE
     Indication: Acute myeloid leukaemia
     Dosage: INDUCTION THERAPY
     Route: 065
     Dates: end: 201910
  3. FLUDARABINE [Suspect]
     Active Substance: FLUDARABINE PHOSPHATE
     Indication: Acute myeloid leukaemia
     Dosage: REINDUCTION THERAPY
     Route: 065
     Dates: start: 201910
  4. VORICONAZOLE [Suspect]
     Active Substance: VORICONAZOLE
     Indication: Antifungal treatment
     Dosage: ON DAY 1
     Route: 065
     Dates: start: 202008
  5. VORICONAZOLE [Suspect]
     Active Substance: VORICONAZOLE
     Indication: Antifungal treatment
     Dosage: DOSE-200MG TWICE A DAY
     Route: 065
     Dates: start: 202008
  6. IDARUBICIN [Suspect]
     Active Substance: IDARUBICIN
     Indication: Acute myeloid leukaemia
     Dosage: INDUCTION THERAPY
     Route: 065
     Dates: start: 2018
  7. IDARUBICIN [Suspect]
     Active Substance: IDARUBICIN
     Dosage: REINDUCTION THERAPY
     Route: 065
     Dates: start: 2019
  8. CYTARABINE [Suspect]
     Active Substance: CYTARABINE
     Indication: Acute myeloid leukaemia
     Dosage: INDUCTION THERAPY
     Route: 065
     Dates: start: 2018
  9. CYTARABINE [Suspect]
     Active Substance: CYTARABINE
     Dosage: THE INDUCTION THERAPY WAS FOLLOWED BY FOUR CONSOLIDATION CYCLES BASED ON HIGH-DOSE CYTARABINE.
     Route: 065
  10. CYTARABINE [Suspect]
     Active Substance: CYTARABINE
     Dosage: REINDUCTION THERAPY
     Route: 065
     Dates: start: 201910
  11. ENASIDENIB [Suspect]
     Active Substance: ENASIDENIB
     Indication: Acute myeloid leukaemia
     Dosage: 100 MILLIGRAM DAILY;
     Route: 065
     Dates: start: 202001
  12. AZACITIDINE [Suspect]
     Active Substance: AZACITIDINE
     Indication: Acute myeloid leukaemia
     Dosage: 75 MG/M2 DAILY; FOR 7 DAYS ON A 28 DAY-CYCLE
     Route: 065
     Dates: start: 2020
  13. CEFTOLOZANE SULFATE\TAZOBACTAM SODIUM [Suspect]
     Active Substance: CEFTOLOZANE SULFATE\TAZOBACTAM SODIUM
     Indication: Antibiotic therapy
     Route: 065
     Dates: start: 2020, end: 2020
  14. COLISTIN [Suspect]
     Active Substance: COLISTIN
     Indication: Antibiotic therapy
     Dosage: 27000000 IU (INTERNATIONAL UNIT) DAILY;
     Route: 065
     Dates: start: 2020
  15. CLINDAMYCIN [Suspect]
     Active Substance: CLINDAMYCIN
     Indication: Antibiotic therapy
     Route: 065
     Dates: start: 2020
  16. AMPHOTERICIN B [Suspect]
     Active Substance: AMPHOTERICIN B
     Indication: Antifungal treatment
     Dosage: 3 MG/KG DAILY;
     Route: 065
  17. AVIBACTAM SODIUM\CEFTAZIDIME [Concomitant]
     Active Substance: AVIBACTAM SODIUM\CEFTAZIDIME
     Indication: Antifungal treatment
     Dosage: 7.5 GRAM DAILY;
     Route: 065
     Dates: start: 202008

REACTIONS (6)
  - Fungaemia [Fatal]
  - Geotrichum infection [Fatal]
  - Septic shock [Fatal]
  - Multiple organ dysfunction syndrome [Fatal]
  - Drug ineffective [Fatal]
  - Neutropenia [Unknown]

NARRATIVE: CASE EVENT DATE: 20190101
